FAERS Safety Report 5583087-2 (Version None)
Quarter: 2008Q1

REPORT INFORMATION
  Report Type: 
  Country: None (occurrence: None)
  Receive Date: 20080107
  Receipt Date: 20080103
  Transmission Date: 20080703
  Serious: Yes (Other)
  Sender: FDA-Public Use
  Company Number: US-WYE-H01942308

PATIENT
  Sex: Female
  Weight: 77 kg

DRUGS (8)
  1. INDERAL [Suspect]
     Dosage: NOT PROVIDED
     Route: 065
  2. NEURONTIN [Concomitant]
     Dosage: NOT PROVIDED
     Route: 065
  3. KLONOPIN [Concomitant]
     Dosage: NOT PROVIDED
     Route: 065
  4. CYMBALTA [Concomitant]
     Dosage: NOT PROVIDED
     Route: 065
  5. TRAZODONE HCL [Concomitant]
     Dosage: NOT PROVIDED
     Route: 065
  6. LYRICA [Suspect]
     Indication: FIBROMYALGIA
     Dosage: NOT PROVIDED
     Route: 065
     Dates: start: 20060401, end: 20060101
  7. LYRICA [Suspect]
     Dosage: NOT PROVIDED
     Route: 065
     Dates: start: 20071023
  8. PERCOCET [Concomitant]
     Dosage: NOT PROVIDED
     Route: 065

REACTIONS (3)
  - DISTURBANCE IN ATTENTION [None]
  - GAIT DISTURBANCE [None]
  - NONSPECIFIC REACTION [None]
